FAERS Safety Report 21186917 (Version 2)
Quarter: 2023Q4

REPORT INFORMATION
  Report Type: Spontaneous
  Country: FR (occurrence: FR)
  Receive Date: 20220808
  Receipt Date: 20231201
  Transmission Date: 20240109
  Serious: Yes (Death, Other)
  Sender: FDA-Public Use
  Company Number: FR-CELLTRION HEALTHCARE HUNGARY KFT-2022FR011160

PATIENT

DRUGS (7)
  1. PREDNISONE [Suspect]
     Active Substance: PREDNISONE
     Indication: Follicular lymphoma
     Dosage: (AS PART OF R-CHOP) (AS AN INDUCTION THERAPY)
     Route: 065
  2. DOXORUBICIN [Suspect]
     Active Substance: DOXORUBICIN
     Indication: Follicular lymphoma
     Dosage: 50 MG/M2 (MILLIGRAM PER SQUARE METRE) (AS PART OF R-CHOP) (ON DAY 1, AS AN INDUCTION THERAPY)
     Route: 065
  3. VINCRISTINE [Suspect]
     Active Substance: VINCRISTINE
     Indication: Follicular lymphoma
     Dosage: 1.4 MG/M2 (MILLIGRAM PER SQUARE METRE)(AS PART OF R-CHOP) (ON DAY 1, AS AN INDUCTION THERAPY)
     Route: 065
  4. RITUXIMAB [Suspect]
     Active Substance: RITUXIMAB
     Indication: Follicular lymphoma
     Dosage: (AS PART OF R-CHOP)
     Route: 065
  5. CYCLOPHOSPHAMIDE [Suspect]
     Active Substance: CYCLOPHOSPHAMIDE
     Indication: Follicular lymphoma
     Dosage: 750 MG/M2
     Route: 065
  6. OBINUTUZUMAB [Suspect]
     Active Substance: OBINUTUZUMAB
     Indication: Follicular lymphoma
     Dosage: 1000 MILLIGRAM (AS AN INDUCTION THERAPY)
     Route: 042
  7. OBINUTUZUMAB [Suspect]
     Active Substance: OBINUTUZUMAB
     Dosage: 1000 MILLIGRAM (AS A MAINTENANCE THERAPY) (EVERY 2 MONTHS)
     Route: 042

REACTIONS (2)
  - Death [Fatal]
  - Drug ineffective [Unknown]
